FAERS Safety Report 9850206 (Version 2)
Quarter: 2014Q1

REPORT INFORMATION
  Report Type: Spontaneous
  Country: US (occurrence: US)
  Receive Date: 20140128
  Receipt Date: 20140128
  Transmission Date: 20141002
  Serious: Yes (Death)
  Sender: FDA-Public Use
  Company Number: US-ABBVIE-13P-163-1126843-00

PATIENT
  Sex: Male
  Weight: 62.65 kg

DRUGS (2)
  1. ANDROGEL [Suspect]
     Indication: PRODUCT USED FOR UNKNOWN INDICATION
     Dosage: 1 PACKET PER DAY
     Dates: start: 201306
  2. ANDROGEL [Suspect]
     Dosage: 1 PACKET PER DAY

REACTIONS (2)
  - Death [Fatal]
  - Application site pain [Recovered/Resolved]
